FAERS Safety Report 4878083-4 (Version None)
Quarter: 2006Q1

REPORT INFORMATION
  Report Type: 
  Country: None (occurrence: None)
  Receive Date: 20060110
  Receipt Date: 20051230
  Transmission Date: 20060701
  Serious: Yes (Other)
  Sender: FDA-Public Use
  Company Number: S05-CHN-03866-01

PATIENT
  Age: 12 Year
  Sex: 0

DRUGS (1)
  1. CITALOPRAM HYDROBROMIDE [Suspect]
     Indication: DEPRESSION
     Dosage: 20 MG QD PO
     Route: 048
     Dates: start: 20050929, end: 20051011

REACTIONS (2)
  - DYSKINESIA [None]
  - MYALGIA [None]
